FAERS Safety Report 10878777 (Version 1)
Quarter: 2015Q1

REPORT INFORMATION
  Report Type: Spontaneous
  Country: PR (occurrence: None)
  Receive Date: 20150224
  Receipt Date: 20150224
  Transmission Date: 20150721
  Serious: No
  Sender: FDA-Public Use
  Company Number: None

PATIENT
  Age: 63 Year
  Sex: Female
  Weight: 75.3 kg

DRUGS (5)
  1. BONIVA [Concomitant]
     Active Substance: IBANDRONATE SODIUM
  2. NORVASC [Concomitant]
     Active Substance: AMLODIPINE BESYLATE
  3. SINGULAIR [Concomitant]
     Active Substance: MONTELUKAST SODIUM
  4. DULERA [Suspect]
     Active Substance: FORMOTEROL FUMARATE DIHYDRATE\MOMETASONE FUROATE
     Indication: ASTHMA
     Route: 055
     Dates: start: 20140826, end: 20150210
  5. ATENOLOL. [Concomitant]
     Active Substance: ATENOLOL

REACTIONS (5)
  - Oropharyngeal pain [None]
  - Tremor [None]
  - Blood pressure increased [None]
  - Heart rate irregular [None]
  - Pharyngeal inflammation [None]
